FAERS Safety Report 7054533-2 (Version None)
Quarter: 2010Q4

REPORT INFORMATION
  Report Type: 
  Country: None (occurrence: None)
  Receive Date: 20101020
  Receipt Date: 20101014
  Transmission Date: 20110411
  Serious: Yes (Other)
  Sender: FDA-Public Use
  Company Number: FR-ABBOTT-10P-056-0673924-00

PATIENT
  Age: 34 Year
  Sex: Female

DRUGS (3)
  1. DEPAKENE [Suspect]
     Indication: BIPOLAR DISORDER
     Dosage: 1900 MG DAILY
     Route: 048
     Dates: end: 20100920
  2. DEPAKENE [Suspect]
     Dosage: 1600 MG DAILY
     Route: 048
  3. OLANZAPINE [Concomitant]
     Indication: PRODUCT USED FOR UNKNOWN INDICATION

REACTIONS (2)
  - DERMATITIS BULLOUS [None]
  - HYPERHIDROSIS [None]
